FAERS Safety Report 10597328 (Version 2)
Quarter: 2015Q1

REPORT INFORMATION
  Report Type: Spontaneous
  Country: DE (occurrence: DE)
  Receive Date: 20141121
  Receipt Date: 20150116
  Transmission Date: 20150720
  Serious: Yes (Hospitalization)
  Sender: FDA-Public Use
  Company Number: DE-009507513-1411DEU007063

PATIENT
  Age: 49 Year
  Sex: Male
  Weight: 110 kg

DRUGS (2)
  1. TEMODAL [Suspect]
     Active Substance: TEMOZOLOMIDE
     Indication: PRODUCT USED FOR UNKNOWN INDICATION
     Dosage: UNK
     Route: 048
  2. FORTECORTIN [Concomitant]
     Active Substance: DEXAMETHASONE

REACTIONS (3)
  - Hepatic enzyme increased [Unknown]
  - Adverse event [Unknown]
  - False positive investigation result [Unknown]

NARRATIVE: CASE EVENT DATE: 201411
